FAERS Safety Report 24242715 (Version 1)
Quarter: 2024Q3

REPORT INFORMATION
  Report Type: Spontaneous
  Country: US (occurrence: None)
  Receive Date: 20240822
  Receipt Date: 20240822
  Transmission Date: 20241016
  Serious: No
  Sender: Public
  Company Number: None

PATIENT
  Age: 42 Year
  Sex: Female
  Weight: 72 kg

DRUGS (7)
  1. SERTRALINE [Suspect]
     Active Substance: SERTRALINE HYDROCHLORIDE
     Indication: Depression
     Dates: start: 20080805
  2. Klonipin [Concomitant]
  3. lamiktL [Concomitant]
  4. spirolocotane [Concomitant]
  5. amlodipin [Concomitant]
  6. bubpropion [Concomitant]
  7. multi vitamins [Concomitant]

REACTIONS (1)
  - Feeling hot [None]

NARRATIVE: CASE EVENT DATE: 20080805
